FAERS Safety Report 4686601-4 (Version None)
Quarter: 2005Q2

REPORT INFORMATION
  Report Type: 
  Country: None (occurrence: None)
  Receive Date: 20050607
  Receipt Date: 20050523
  Transmission Date: 20051028
  Serious: Yes (Death)
  Sender: FDA-Public Use
  Company Number: 2005082297

PATIENT
  Age: 23 Year
  Sex: 0

DRUGS (1)
  1. GEODON [Suspect]
     Indication: AGITATION

REACTIONS (1)
  - CONVULSION [None]
